FAERS Safety Report 5785981-6 (Version None)
Quarter: 2008Q2

REPORT INFORMATION
  Report Type: 
  Country: None (occurrence: None)
  Receive Date: 20080624
  Receipt Date: 20080616
  Transmission Date: 20081010
  Serious: Yes (Hospitalization)
  Sender: FDA-Public Use
  Company Number: PHBS2008NL04824

PATIENT
  Age: 19 Year
  Sex: Male

DRUGS (5)
  1. CYCLOSPORINE [Suspect]
     Indication: COLITIS ULCERATIVE
     Dosage: 150 MG, BID
  2. AZATHIOPRINE [Suspect]
     Indication: COLITIS ULCERATIVE
     Dosage: 150 MG, QD
  3. AZATHIOPRINE [Suspect]
     Dosage: 25 MG, QD
  4. AZATHIOPRINE [Suspect]
     Dosage: 12.5 MG, QD
  5. STEROIDS NOS [Concomitant]

REACTIONS (5)
  - HAEMOGLOBIN DECREASED [None]
  - LEUKOPENIA [None]
  - PANCYTOPENIA [None]
  - PLATELET COUNT DECREASED [None]
  - SEPSIS [None]
